FAERS Safety Report 5251868-0 (Version None)
Quarter: 2007Q1

REPORT INFORMATION
  Report Type: 
  Country: None (occurrence: None)
  Receive Date: 20070228
  Receipt Date: 20070223
  Transmission Date: 20070707
  Serious: Yes (Disabling, Other)
  Sender: FDA-Public Use
  Company Number: US-PFIZER INC-2006120064

PATIENT
  Sex: Female
  Weight: 74.8 kg

DRUGS (12)
  1. DEPO-MEDROL [Suspect]
     Indication: OSTEOARTHRITIS
     Dates: start: 20060912, end: 20060901
  2. DEPO-MEDROL [Suspect]
  3. DEPO-MEDROL [Suspect]
     Indication: ARTHRALGIA
  4. DIOVAN HCT [Concomitant]
  5. DARVOCET-N 100 [Concomitant]
  6. VITAMIN CAP [Concomitant]
  7. CALCIUM [Concomitant]
  8. MAGNESIUM [Concomitant]
  9. FISH OIL [Concomitant]
  10. CARTILAGE [Concomitant]
  11. MOBIC [Concomitant]
  12. PRILOSEC [Concomitant]

REACTIONS (7)
  - BLOOD PRESSURE DECREASED [None]
  - DIZZINESS [None]
  - DYSARTHRIA [None]
  - DYSGRAPHIA [None]
  - GAIT DISTURBANCE [None]
  - SPEECH DISORDER [None]
  - WEIGHT DECREASED [None]
